FAERS Safety Report 15440643 (Version 1)
Quarter: 2018Q3

REPORT INFORMATION
  Report Type: Spontaneous
  Country: AU (occurrence: AU)
  Receive Date: 20180928
  Receipt Date: 20180928
  Transmission Date: 20181010
  Serious: Yes (Hospitalization)
  Sender: FDA-Public Use
  Company Number: AU-IPSEN BIOPHARMACEUTICALS, INC.-2018-14644

PATIENT
  Sex: Female

DRUGS (1)
  1. DYSPORT [Suspect]
     Active Substance: ABOBOTULINUMTOXINA
     Indication: SKIN COSMETIC PROCEDURE
     Dosage: NOT REPORTED
     Route: 065

REACTIONS (6)
  - Ear pain [Recovered/Resolved]
  - Transient ischaemic attack [Recovered/Resolved]
  - Vertigo [Recovered/Resolved]
  - Facial pain [Recovered/Resolved]
  - Circulatory collapse [Recovered/Resolved]
  - Neck pain [Recovered/Resolved]
